FAERS Safety Report 21460037 (Version 1)
Quarter: 2022Q4

REPORT INFORMATION
  Report Type: Spontaneous
  Country: RO (occurrence: RO)
  Receive Date: 20221014
  Receipt Date: 20221014
  Transmission Date: 20230113
  Serious: Yes (Other)
  Sender: FDA-Public Use
  Company Number: RO-PFIZER INC-PV202200080393

PATIENT

DRUGS (2)
  1. DAURISMO [Suspect]
     Active Substance: GLASDEGIB
     Dosage: 100 MG, DAILY
  2. CYTARABINE [Suspect]
     Active Substance: CYTARABINE
     Dosage: 20 MG, DAILY

REACTIONS (1)
  - Bone marrow failure [Unknown]
